FAERS Safety Report 11058739 (Version 2)
Quarter: 2015Q2

REPORT INFORMATION
  Report Type: Spontaneous
  Country: DE (occurrence: None)
  Receive Date: 20150421
  Receipt Date: 20150423
  Transmission Date: 20150821
  Serious: Yes (Hospitalization)
  Sender: FDA-Public Use
  Company Number: DE-H14001-15-00557

PATIENT
  Age: 70 Year
  Sex: Female

DRUGS (2)
  1. CARBOPLATIN (CARBOPLATIN) (UNKNOWN) (CARBOPLATIN) [Suspect]
     Active Substance: CARBOPLATIN
     Indication: LUNG ADENOCARCINOMA METASTATIC
     Dates: start: 2011, end: 2011
  2. PACLITAXEL (PACLITAXEL) (UNKNOWN) (PACLITAXEL) [Suspect]
     Active Substance: PACLITAXEL
     Indication: LUNG ADENOCARCINOMA METASTATIC
     Dates: start: 2011, end: 2011

REACTIONS (3)
  - Urinary tract infection [None]
  - Device related infection [None]
  - Disease complication [None]

NARRATIVE: CASE EVENT DATE: 2011
